FAERS Safety Report 6122419-3 (Version None)
Quarter: 2009Q1

REPORT INFORMATION
  Report Type: 
  Country: None (occurrence: None)
  Receive Date: 20090318
  Receipt Date: 20090123
  Transmission Date: 20090719
  Serious: No
  Sender: FDA-Public Use
  Company Number: US-ASTRAZENECA-2009UW02075

PATIENT
  Age: 24076 Day
  Sex: Female
  Weight: 81.2 kg

DRUGS (3)
  1. SYMBICORT [Suspect]
     Indication: ASTHMA
     Dosage: 80/4.5 2 PUFFS BID
     Route: 055
     Dates: start: 20071201, end: 20080101
  2. SYNTHROID [Concomitant]
  3. ACTONEL [Concomitant]

REACTIONS (2)
  - DIZZINESS [None]
  - FEELING ABNORMAL [None]
